FAERS Safety Report 23794699 (Version 1)
Quarter: 2024Q2

REPORT INFORMATION
  Report Type: Report from Study
  Country: JP (occurrence: JP)
  Receive Date: 20240429
  Receipt Date: 20240429
  Transmission Date: 20240716
  Serious: Yes (Other)
  Sender: FDA-Public Use
  Company Number: JP-GUERBETG_JAPAN-JP-20240049

PATIENT

DRUGS (3)
  1. LIPIODOL [Suspect]
     Active Substance: ETHIODIZED OIL
     Indication: Transcatheter arterial chemoembolisation
     Dosage: LIPIODOL WITH EPIRUBICIN FOLLOWED BY POROUS GELATIN PARTICLES (GELPART).
     Route: 013
  2. EPIRUBICIN [Suspect]
     Active Substance: EPIRUBICIN
     Indication: Transcatheter arterial chemoembolisation
     Dosage: LIPIODOL WITH EPIRUBICIN FOLLOWED BY POROUS GELATIN PARTICLES (GELPART).
     Route: 013
  3. GELATIN [Suspect]
     Active Substance: GELATIN
     Indication: Transcatheter arterial chemoembolisation
     Dosage: LIPIODOL WITH EPIRUBICIN FOLLOWED BY POROUS GELATIN PARTICLES (GELPART).
     Route: 013

REACTIONS (2)
  - Liver injury [Unknown]
  - Pyrexia [Unknown]
